FAERS Safety Report 6746343-8 (Version None)
Quarter: 2010Q2

REPORT INFORMATION
  Report Type: 
  Country: None (occurrence: None)
  Receive Date: 20100528
  Receipt Date: 20100517
  Transmission Date: 20101027
  Serious: Yes (Other)
  Sender: FDA-Public Use
  Company Number: US-PFIZER INC-2010061613

PATIENT
  Sex: Female
  Weight: 90 kg

DRUGS (15)
  1. XANAX [Suspect]
     Dosage: UNK
     Route: 065
  2. PROVIGIL [Suspect]
     Indication: MULTIPLE SCLEROSIS
     Dosage: 200 MG, 1X/DAY
     Route: 048
     Dates: start: 20090101, end: 20100321
  3. PROVIGIL [Suspect]
     Dosage: 200 MG, TWICE A DAY, IF NEEDED
  4. PROZAC [Concomitant]
  5. SYNTHROID [Concomitant]
  6. BUPROPION [Concomitant]
  7. ZANAFLEX [Concomitant]
  8. BUSPIRONE [Concomitant]
  9. AVONEX [Concomitant]
  10. CALCIUM WITH VITAMIN D [Concomitant]
  11. FISH OIL [Concomitant]
  12. AMITRIPTYLINE [Concomitant]
  13. NORCO [Concomitant]
  14. CLONAZEPAM [Concomitant]
  15. LORTAB [Concomitant]

REACTIONS (8)
  - BLOOD PRESSURE INCREASED [None]
  - CONVULSION [None]
  - DYSPNOEA [None]
  - ERYTHEMA [None]
  - HEART RATE INCREASED [None]
  - HYSTERECTOMY [None]
  - TREMOR [None]
  - WITHDRAWAL SYNDROME [None]
